FAERS Safety Report 18322078 (Version 2)
Quarter: 2022Q2

REPORT INFORMATION
  Report Type: Spontaneous
  Country: CA (occurrence: CA)
  Receive Date: 20200929
  Receipt Date: 20220430
  Transmission Date: 20220721
  Serious: Yes (Other)
  Sender: FDA-Public Use
  Company Number: None

PATIENT
  Age: 33 Year
  Sex: Male

DRUGS (6)
  1. FLUOROURACIL [Suspect]
     Active Substance: FLUOROURACIL
     Indication: Colorectal cancer metastatic
  2. IRINOTECAN HYDROCHLORIDE [Suspect]
     Active Substance: IRINOTECAN HYDROCHLORIDE
     Indication: Colorectal cancer metastatic
  3. OXALIPLATIN [Suspect]
     Active Substance: OXALIPLATIN
     Indication: Colorectal cancer metastatic
  4. LEUCOVORIN CALCIUM [Suspect]
     Active Substance: LEUCOVORIN CALCIUM
     Indication: Colorectal cancer metastatic
  5. ERBITUX [Suspect]
     Active Substance: CETUXIMAB
     Indication: Colorectal cancer metastatic
     Route: 042
  6. TIPIRACIL HYDROCHLORIDE\TRIFLURIDINE [Suspect]
     Active Substance: TIPIRACIL HYDROCHLORIDE\TRIFLURIDINE
     Indication: Colorectal cancer metastatic

REACTIONS (2)
  - Neoplasm progression [Unknown]
  - Malignant neoplasm progression [Unknown]
